FAERS Safety Report 6237507-0 (Version None)
Quarter: 2009Q2

REPORT INFORMATION
  Report Type: 
  Country: None (occurrence: None)
  Receive Date: 20090619
  Receipt Date: 20090423
  Transmission Date: 20091009
  Serious: No
  Sender: FDA-Public Use
  Company Number: US-AMGEN-KDL344207

PATIENT
  Sex: Male

DRUGS (3)
  1. ARANESP [Suspect]
     Indication: RENAL FAILURE CHRONIC
  2. DILANTIN [Concomitant]
  3. KAYEXALATE [Concomitant]

REACTIONS (3)
  - FLUID RETENTION [None]
  - HAEMOGLOBIN DECREASED [None]
  - SOMNOLENCE [None]
